FAERS Safety Report 8880117 (Version 2)
Quarter: 2013Q1

REPORT INFORMATION
  Report Type: Spontaneous
  Country: US (occurrence: US)
  Receive Date: 20121031
  Receipt Date: 20130213
  Transmission Date: 20140127
  Serious: Yes (Hospitalization, Other)
  Sender: FDA-Public Use
  Company Number: US-ASTRAZENECA-2012SE80799

PATIENT
  Age: 73 Year
  Sex: Male
  Weight: 78.5 kg

DRUGS (12)
  1. NEXIUM [Suspect]
     Indication: GASTROOESOPHAGEAL REFLUX DISEASE
     Route: 048
  2. NEXIUM [Suspect]
     Indication: GASTROOESOPHAGEAL REFLUX DISEASE
     Route: 048
  3. NEXIUM [Suspect]
     Indication: GASTROOESOPHAGEAL REFLUX DISEASE
     Route: 048
     Dates: start: 2008
  4. PRILOSEC [Suspect]
     Indication: GASTROOESOPHAGEAL REFLUX DISEASE
     Route: 048
     Dates: start: 1990
  5. PRILOSEC [Suspect]
     Indication: GASTROOESOPHAGEAL REFLUX DISEASE
     Route: 048
     Dates: start: 1990
  6. PRILOSEC [Suspect]
     Indication: GASTROOESOPHAGEAL REFLUX DISEASE
     Route: 048
  7. PRILOSEC [Suspect]
     Indication: GASTROOESOPHAGEAL REFLUX DISEASE
     Route: 048
  8. PRILOSEC [Suspect]
     Indication: GASTROOESOPHAGEAL REFLUX DISEASE
     Route: 048
  9. PRILOSEC [Suspect]
     Indication: GASTROOESOPHAGEAL REFLUX DISEASE
     Route: 048
  10. SYNTHROID [Concomitant]
     Indication: THYROID DISORDER
     Route: 048
     Dates: start: 2002
  11. TENORMIN [Concomitant]
     Indication: CARDIAC DISORDER
     Route: 048
     Dates: start: 1985
  12. TENORMIN [Concomitant]
     Indication: CARDIAC DISORDER
     Route: 048

REACTIONS (17)
  - Hip fracture [Recovered/Resolved]
  - Neuroendocrine tumour [Unknown]
  - Fall [Unknown]
  - Patella fracture [Unknown]
  - Basal cell carcinoma [Unknown]
  - Thyroid cancer [Unknown]
  - Abdominal hernia [Unknown]
  - Hot flush [Not Recovered/Not Resolved]
  - Blood chromogranin A increased [Unknown]
  - Glaucoma [Unknown]
  - Histamine level increased [Unknown]
  - Thyroid disorder [Unknown]
  - Chronic obstructive pulmonary disease [Unknown]
  - Hernia [Unknown]
  - Constipation [Unknown]
  - Drug ineffective [Unknown]
  - Off label use [Unknown]
